FAERS Safety Report 5249378-X (Version None)
Quarter: 2007Q1

REPORT INFORMATION
  Report Type: 
  Country: None (occurrence: None)
  Receive Date: 20070228
  Receipt Date: 20060918
  Transmission Date: 20070707
  Serious: No
  Sender: FDA-Public Use
  Company Number: US-GLAXOSMITHKLINE-A0620509A

PATIENT
  Age: 67 Year
  Sex: Female

DRUGS (3)
  1. VALTREX [Suspect]
     Dosage: 1000MG THREE TIMES PER DAY
     Route: 048
     Dates: start: 20060905, end: 20060912
  2. PAXIL [Concomitant]
  3. LIPITOR [Concomitant]

REACTIONS (1)
  - DRUG INEFFECTIVE [None]
